FAERS Safety Report 21729205 (Version 1)
Quarter: 2022Q4

REPORT INFORMATION
  Report Type: Spontaneous
  Country: CN (occurrence: CN)
  Receive Date: 20221214
  Receipt Date: 20221214
  Transmission Date: 20230113
  Serious: Yes (Other)
  Sender: FDA-Public Use
  Company Number: CN-002147023-NVSC2022CN280842

PATIENT
  Age: 59 Year
  Sex: Male

DRUGS (2)
  1. VORICONAZOLE [Suspect]
     Active Substance: VORICONAZOLE
     Indication: Pneumonia
     Dosage: 200 MG, BID (Q12H)
     Route: 048
     Dates: start: 20221109
  2. VORICONAZOLE [Suspect]
     Active Substance: VORICONAZOLE
     Indication: Antifungal treatment
     Dosage: 300 MG, BID (Q12H)
     Route: 048
     Dates: start: 20221116, end: 20221117

REACTIONS (4)
  - Hallucination, visual [Recovering/Resolving]
  - Hallucination [Recovered/Resolved]
  - Loss of consciousness [Unknown]
  - Disorganised speech [Unknown]

NARRATIVE: CASE EVENT DATE: 20221117
